FAERS Safety Report 21784097 (Version 1)
Quarter: 2022Q4

REPORT INFORMATION
  Report Type: Spontaneous
  Country: US (occurrence: None)
  Receive Date: 20221224
  Receipt Date: 20221224
  Transmission Date: 20230113
  Serious: Yes (Hospitalization)
  Sender: FDA-Public Use
  Company Number: None

PATIENT
  Sex: Female

DRUGS (19)
  1. PROMACTA [Suspect]
     Active Substance: ELTROMBOPAG OLAMINE
     Indication: Hypersensitivity pneumonitis
     Route: 048
     Dates: start: 20220805
  2. BREO ELLIPTA [Concomitant]
     Active Substance: FLUTICASONE FUROATE\VILANTEROL TRIFENATATE
  3. CALCIUM [Concomitant]
     Active Substance: CALCIUM
  4. CELLCEPT [Concomitant]
     Active Substance: MYCOPHENOLATE MOFETIL
  5. CLARITIN [Concomitant]
     Active Substance: LORATADINE
  6. FLONASE [Concomitant]
     Active Substance: FLUTICASONE PROPIONATE
  7. IBUPROFEN [Concomitant]
     Active Substance: IBUPROFEN
  8. LASIX [Concomitant]
     Active Substance: FUROSEMIDE
  9. MAGNESIUM OXIDE [Concomitant]
     Active Substance: MAGNESIUM OXIDE
  10. MUCINEX [Concomitant]
     Active Substance: GUAIFENESIN
  11. VITAMINS [Concomitant]
     Active Substance: VITAMINS
  12. PANTOPRAZOLE [Concomitant]
     Active Substance: PANTOPRAZOLE
  13. PREDNISONE [Concomitant]
     Active Substance: PREDNISONE
  14. PRILOSEC [Concomitant]
     Active Substance: OMEPRAZOLE MAGNESIUM
  15. SINGULAIR [Concomitant]
     Active Substance: MONTELUKAST SODIUM
  16. SODIUM CHLOR SOL [Concomitant]
  17. SYMBICORT [Concomitant]
     Active Substance: BUDESONIDE\FORMOTEROL FUMARATE DIHYDRATE
  18. VITAMIN C [Concomitant]
     Active Substance: ASCORBIC ACID
  19. VITAMIN D [Concomitant]
     Active Substance: VITAMIN D NOS

REACTIONS (1)
  - Cardiac failure congestive [None]
